FAERS Safety Report 14532448 (Version 2)
Quarter: 2018Q1

REPORT INFORMATION
  Report Type: Spontaneous
  Country: US (occurrence: US)
  Receive Date: 20180214
  Receipt Date: 20180307
  Transmission Date: 20180509
  Serious: Yes (Other)
  Sender: FDA-Public Use
  Company Number: US-GLAXOSMITHKLINE-US2018021292

PATIENT
  Age: 77 Year
  Sex: Female

DRUGS (1)
  1. SENSODYNE PRONAMEL [Suspect]
     Active Substance: POTASSIUM NITRATE\SODIUM FLUORIDE
     Indication: TOOTH EROSION
     Dosage: UNK

REACTIONS (3)
  - Choking [Unknown]
  - Cough [Unknown]
  - Expired product administered [Not Recovered/Not Resolved]
